FAERS Safety Report 7488966-7 (Version None)
Quarter: 2011Q2

REPORT INFORMATION
  Report Type: 
  Country: None (occurrence: None)
  Receive Date: 20110518
  Receipt Date: 20110511
  Transmission Date: 20111010
  Serious: Yes (Disabling)
  Sender: FDA-Public Use
  Company Number: FR-PFIZER INC-2011037437

PATIENT
  Sex: Female

DRUGS (5)
  1. ADVIL LIQUI-GELS [Concomitant]
     Dosage: 1 DF, 3X/DAY
     Route: 048
  2. SPASFON [Concomitant]
     Dosage: 2 DF, 3X/DAY
     Route: 048
  3. PROPOFAN [Concomitant]
     Dosage: 2 DF, 3X/DAY
     Route: 048
  4. PANTOPRAZOLE [Suspect]
     Dosage: 20 MG, UNK
     Route: 048
  5. LEVOFLOXACIN [Concomitant]
     Dosage: 500 MG,
     Route: 048

REACTIONS (11)
  - RESPIRATORY DISTRESS [None]
  - DIZZINESS [None]
  - PYREXIA [None]
  - NAUSEA [None]
  - SPEECH DISORDER [None]
  - RENAL PAIN [None]
  - HEADACHE [None]
  - VISUAL IMPAIRMENT [None]
  - MYALGIA [None]
  - COAGULOPATHY [None]
  - ARRHYTHMIA [None]
